FAERS Safety Report 12540982 (Version 1)
Quarter: 2016Q3

REPORT INFORMATION
  Report Type: Report from Study
  Country: JP (occurrence: JP)
  Receive Date: 20160708
  Receipt Date: 20160708
  Transmission Date: 20161109
  Serious: Yes (Hospitalization)
  Sender: FDA-Public Use
  Company Number: JP-SA-2016SA123531

PATIENT
  Age: 62 Year
  Sex: Male
  Weight: 74.5 kg

DRUGS (12)
  1. PLAVIX [Suspect]
     Active Substance: CLOPIDOGREL BISULFATE
     Indication: CEREBROVASCULAR ACCIDENT
     Route: 065
     Dates: start: 20120926, end: 20130215
  2. BEZATOL [Concomitant]
     Active Substance: BEZAFIBRATE
     Dosage: STRENGTH: 200 MG
     Dates: end: 20130215
  3. VOLTAREN [Concomitant]
     Active Substance: DICLOFENAC SODIUM
     Dosage: STRENGTH: 25 MG
     Dates: start: 20130131, end: 20130228
  4. TENORMIN [Concomitant]
     Active Substance: ATENOLOL
     Dosage: STRENGTH: 50 (UNITS NOT REPORTED)
     Dates: end: 20130215
  5. METHYCOBAL [Concomitant]
     Active Substance: METHYLCOBALAMIN
     Dosage: STRENGTH: 500 MCG
     Dates: end: 20130215
  6. CALSLOT [Concomitant]
     Active Substance: MANIDIPINE HYDROCHLORIDE
     Dosage: STRENGTH: 10 MG
     Dates: start: 20121204, end: 20130215
  7. HUMALOG MIX [Concomitant]
     Active Substance: INSULIN LISPRO
     Dates: start: 20121026, end: 20130215
  8. MYSER [Concomitant]
     Active Substance: DIFLUPREDNATE
     Dates: start: 20121206
  9. HIRUDOID [Concomitant]
     Active Substance: GLYCOSAMINOGLYCANS
     Dates: start: 20130212, end: 20130227
  10. METHADERM [Concomitant]
     Dates: start: 20130212, end: 20130227
  11. HALCION [Concomitant]
     Active Substance: TRIAZOLAM
     Dosage: STRENGTH: 0.25 MG
     Dates: end: 20130224
  12. TAPIZOL [Concomitant]
     Active Substance: LANSOPRAZOLE
     Dosage: STRENGTH: 15 (UNITS NOT REPORTED)
     Dates: start: 20121226, end: 20130215

REACTIONS (2)
  - Colitis ischaemic [Recovering/Resolving]
  - Diarrhoea [Recovered/Resolved]

NARRATIVE: CASE EVENT DATE: 20130205
